FAERS Safety Report 20467779 (Version 1)
Quarter: 2022Q1

REPORT INFORMATION
  Report Type: Spontaneous
  Country: JP (occurrence: JP)
  Receive Date: 20220214
  Receipt Date: 20220214
  Transmission Date: 20220424
  Serious: Yes (Other)
  Sender: FDA-Public Use
  Company Number: JP-ASTELLAS-2021JP024942

PATIENT
  Age: 7 Decade
  Sex: Male

DRUGS (1)
  1. PADCEV [Suspect]
     Active Substance: ENFORTUMAB VEDOTIN-EJFV
     Indication: Transitional cell carcinoma
     Dosage: 1.0 MG/KG, UNKNOWN FREQ.
     Route: 041
     Dates: start: 20211214, end: 20220125

REACTIONS (7)
  - Metastases to peritoneum [Unknown]
  - Pneumonia [Recovering/Resolving]
  - Paraesthesia [Not Recovered/Not Resolved]
  - Coating in mouth [Unknown]
  - Hyponatraemia [Unknown]
  - Pyrexia [Recovering/Resolving]
  - Anaemia [Not Recovered/Not Resolved]
